FAERS Safety Report 10501040 (Version 1)
Quarter: 2014Q4

REPORT INFORMATION
  Report Type: Spontaneous
  Country: US (occurrence: None)
  Receive Date: 20141006
  Receipt Date: 20141006
  Transmission Date: 20150528
  Serious: Yes (Other)
  Sender: FDA-Public Use
  Company Number: None

PATIENT
  Age: 70 Year
  Sex: Female
  Weight: 55.79 kg

DRUGS (2)
  1. PERMETHRIN. [Suspect]
     Active Substance: PERMETHRIN
     Indication: ACARODERMATITIS
     Dosage: TUBE ALL OVER BODY AND HEAD?ONE OR 2 WEEK APART, JUL 6,11,25?JUN 10,16,30??JUNE 10, 16, 30 JULY 6, 11, 25
  2. STROMECTOL [Suspect]
     Active Substance: IVERMECTIN
     Indication: ACARODERMATITIS
     Dosage: 3MG 4 PILLS 2 WEEKS APART?2 WEEKS APART
     Dates: start: 20140807

REACTIONS (2)
  - Abdominal pain upper [None]
  - Malaise [None]

NARRATIVE: CASE EVENT DATE: 20140612
